FAERS Safety Report 4732234-0 (Version None)
Quarter: 2005Q3

REPORT INFORMATION
  Report Type: 
  Country: None (occurrence: None)
  Receive Date: 20050802
  Receipt Date: 20050727
  Transmission Date: 20060218
  Serious: Yes (Hospitalization)
  Sender: FDA-Public Use
  Company Number: US-MERCK-0507USA04346

PATIENT
  Age: 87 Year
  Sex: Female
  Weight: 84 kg

DRUGS (10)
  1. VIOXX [Suspect]
     Indication: ARTHRITIS
     Route: 048
     Dates: start: 20000501, end: 20021201
  2. [THERAPY UNSPECIFIED] [Concomitant]
     Route: 065
  3. ENALAPRIL COMP [Concomitant]
     Indication: HYPERTENSION
     Route: 065
  4. [THERAPY UNSPECIFIED] [Concomitant]
     Route: 065
  5. TRIMETOPRIM-SULFA [Concomitant]
     Indication: URINARY INCONTINENCE
     Route: 065
  6. ASCORBIC ACID [Concomitant]
     Route: 065
  7. PAXIL [Concomitant]
     Route: 065
     Dates: start: 19960501, end: 20050521
  8. VITAMIN E [Concomitant]
     Route: 065
  9. VASOTEC RPD [Concomitant]
     Indication: HYPERTENSION
     Route: 048
     Dates: start: 19800101, end: 20050521
  10. TYLENOL (CAPLET) [Concomitant]
     Route: 065
     Dates: end: 20050501

REACTIONS (1)
  - MYOCARDIAL INFARCTION [None]
